FAERS Safety Report 7088545-X (Version None)
Quarter: 2010Q4

REPORT INFORMATION
  Report Type: 
  Country: None (occurrence: None)
  Receive Date: 20101108
  Receipt Date: 20101031
  Transmission Date: 20110411
  Serious: No
  Sender: FDA-Public Use
  Company Number: US-B.I. PHARMACEUTICALS,INC./RIDGEFIELD-2010-BP-12188BP

PATIENT
  Age: 35 Year
  Sex: Female

DRUGS (3)
  1. ZANTAC 150 [Suspect]
     Indication: DYSPEPSIA
     Dosage: 300 MG
     Route: 048
     Dates: start: 20100401
  2. OXYCODONE [Concomitant]
     Indication: NERVE INJURY
  3. SOMA [Concomitant]
     Indication: NERVE INJURY

REACTIONS (1)
  - AMPHETAMINES POSITIVE [None]
